FAERS Safety Report 4610060-0 (Version None)
Quarter: 2005Q1

REPORT INFORMATION
  Report Type: 
  Country: None (occurrence: None)
  Receive Date: 20050315
  Receipt Date: 20050307
  Transmission Date: 20050727
  Serious: Yes (Life-Threatening)
  Sender: FDA-Public Use
  Company Number: 2005CG00485

PATIENT
  Age: 12 Year
  Sex: Female

DRUGS (6)
  1. DIPRIVAN [Suspect]
     Indication: GENERAL ANAESTHESIA
     Dosage: 100 MG INJECTED TWICE
     Dates: start: 20050121, end: 20050121
  2. DIPRIVAN [Suspect]
     Indication: GENERAL ANAESTHESIA
     Dosage: 150 MG ONCE IV
     Route: 042
     Dates: start: 20050121, end: 20050121
  3. SUFENTA [Suspect]
     Indication: GENERAL ANAESTHESIA
     Dosage: 5 UG INJECTED TWICE
     Dates: start: 20050121, end: 20050121
  4. SEVORANE [Suspect]
     Indication: GENERAL ANAESTHESIA
     Dates: start: 20050121, end: 20050121
  5. CELOCURIN [Suspect]
     Indication: GENERAL ANAESTHESIA
     Dosage: 40 MG ONCE IV
     Route: 042
     Dates: start: 20050121, end: 20050121
  6. NITROUS OXIDE [Suspect]
     Indication: GENERAL ANAESTHESIA
     Dosage: 50 % IH
     Route: 055
     Dates: start: 20050121, end: 20050121

REACTIONS (6)
  - ANAESTHETIC COMPLICATION [None]
  - HYPERCAPNIA [None]
  - HYPERTHERMIA MALIGNANT [None]
  - MUSCLE RIGIDITY [None]
  - PROCEDURAL COMPLICATION [None]
  - TRISMUS [None]
